FAERS Safety Report 16320509 (Version 1)
Quarter: 2019Q2

REPORT INFORMATION
  Report Type: Spontaneous
  Country: US (occurrence: US)
  Receive Date: 20190410
  Receipt Date: 20190410
  Transmission Date: 20190711
  Serious: Yes (Hospitalization)
  Sender: FDA-Public Use
  Company Number: None

PATIENT
  Age: 89 Year
  Sex: Female

DRUGS (13)
  1. FUROSEMIDE. [Concomitant]
     Active Substance: FUROSEMIDE
  2. LEFLUNOMIDE. [Concomitant]
     Active Substance: LEFLUNOMIDE
  3. LISINOPRIL. [Concomitant]
     Active Substance: LISINOPRIL
  4. POT CHLORIDE [Concomitant]
     Active Substance: POTASSIUM CHLORIDE
  5. AMIODARONE [Concomitant]
     Active Substance: AMIODARONE
  6. HYDROCO/APAP [Concomitant]
     Active Substance: ACETAMINOPHEN\HYDROCODONE
  7. CARVEDIOL [Concomitant]
     Active Substance: CARVEDILOL
  8. MEGESTROL [Concomitant]
     Active Substance: MEGESTROL
  9. SILDENAFIL 20MG [Suspect]
     Active Substance: SILDENAFIL
     Indication: PULMONARY HYPERTENSION
     Route: 048
     Dates: start: 20171227
  10. ELIQUIS [Concomitant]
     Active Substance: APIXABAN
  11. OMEPRAZOLE. [Concomitant]
     Active Substance: OMEPRAZOLE
  12. ALBUTEROL. [Concomitant]
     Active Substance: ALBUTEROL
  13. SPIRIVA [Concomitant]
     Active Substance: TIOTROPIUM BROMIDE MONOHYDRATE

REACTIONS (1)
  - Hospitalisation [None]

NARRATIVE: CASE EVENT DATE: 20190406
